FAERS Safety Report 5888921-4 (Version None)
Quarter: 2008Q3

REPORT INFORMATION
  Report Type: 
  Country: None (occurrence: None)
  Receive Date: 20080919
  Receipt Date: 20080910
  Transmission Date: 20090109
  Serious: Yes (Other)
  Sender: FDA-Public Use
  Company Number: MX-WYE-H05972408

PATIENT
  Age: 73 Year
  Sex: Male

DRUGS (3)
  1. TYGACIL [Suspect]
     Indication: LIVER ABSCESS
     Dosage: UNKNOWN
     Route: 042
     Dates: start: 20080904, end: 20080909
  2. FLAGYL [Concomitant]
     Dosage: UNKNOWN
  3. NEXIUM [Concomitant]
     Dosage: UNKNOWN

REACTIONS (3)
  - BLISTER [None]
  - CARDIO-RESPIRATORY ARREST [None]
  - NERVOUS SYSTEM DISORDER [None]
